FAERS Safety Report 20008188 (Version 2)
Quarter: 2021Q4

REPORT INFORMATION
  Report Type: Spontaneous
  Country: SA (occurrence: SA)
  Receive Date: 20211029
  Receipt Date: 20211029
  Transmission Date: 20220303
  Serious: Yes (Other)
  Sender: FDA-Public Use
  Company Number: SA-ENDO PHARMACEUTICALS INC-2021-012450

PATIENT
  Age: 80 Year
  Sex: Female

DRUGS (1)
  1. BACLOFEN [Suspect]
     Active Substance: BACLOFEN
     Indication: Product used for unknown indication
     Dosage: 10 MG (LOW DOSE), SINGLE
     Route: 065

REACTIONS (1)
  - Encephalopathy [Unknown]
